FAERS Safety Report 18044819 (Version 2)
Quarter: 2020Q4

REPORT INFORMATION
  Report Type: Other
  Country: CA (occurrence: CA)
  Receive Date: 20200720
  Receipt Date: 20201020
  Transmission Date: 20210113
  Serious: Yes (Other)
  Sender: FDA-Public Use
  Company Number: CA-BECTON DICKINSON-2020BDN00059

PATIENT
  Sex: Female
  Weight: 97 kg

DRUGS (28)
  1. ENBREL [Suspect]
     Active Substance: ETANERCEPT
     Route: 058
  2. OXYCODONE HCL CR [Suspect]
     Active Substance: OXYCODONE HYDROCHLORIDE
  3. PERIOGARD ALCOHOL FREE [Suspect]
     Active Substance: CHLORHEXIDINE GLUCONATE
     Route: 002
  4. SIMPONI [Suspect]
     Active Substance: GOLIMUMAB
     Route: 058
  5. CHLORAPREP [Suspect]
     Active Substance: CHLORHEXIDINE GLUCONATE\ISOPROPYL ALCOHOL
     Route: 061
  6. ORENCIA [Suspect]
     Active Substance: ABATACEPT
     Dosage: 125 MG, 1X/WEEK
     Route: 042
  7. IBUPROFEN. [Concomitant]
     Active Substance: IBUPROFEN
  8. CIMZIA [Suspect]
     Active Substance: CERTOLIZUMAB PEGOL
     Route: 058
  9. METHOTREXATE. [Suspect]
     Active Substance: METHOTREXATE
     Indication: RHEUMATOID ARTHRITIS
  10. ORENCIA [Suspect]
     Active Substance: ABATACEPT
     Indication: RHEUMATOID ARTHRITIS
     Dosage: UNK
     Route: 042
  11. CETIRIZINE DIHYDROCHLORIDE [Concomitant]
     Active Substance: CETIRIZINE HYDROCHLORIDE
  12. MARVELON [Concomitant]
     Active Substance: DESOGESTREL\ETHINYL ESTRADIOL
  13. PANTOPRAZOLE [Concomitant]
     Active Substance: PANTOPRAZOLE
  14. CHLORHEXIDINE GLUCONATE ORAL RINSE [Suspect]
     Active Substance: CHLORHEXIDINE GLUCONATE
     Route: 048
  15. SULFAMETHOXAZOLE AND TRIMETHOPRIM [Suspect]
     Active Substance: SULFAMETHOXAZOLE\TRIMETHOPRIM
  16. ARAVA [Concomitant]
     Active Substance: LEFLUNOMIDE
  17. ACETAMINOPHEN. [Suspect]
     Active Substance: ACETAMINOPHEN
  18. PLAQUENIL [Concomitant]
     Active Substance: HYDROXYCHLOROQUINE SULFATE
  19. ZOPICLONE [Concomitant]
     Active Substance: ZOPICLONE
  20. OXYCODONE [Suspect]
     Active Substance: OXYCODONE
  21. OXYCODONE TEREPHTHALATE [Suspect]
     Active Substance: OXYCODONE TEREPHTHALATE
  22. PANTOLOC [Concomitant]
     Active Substance: PANTOPRAZOLE SODIUM
  23. ACTEMRA [Suspect]
     Active Substance: TOCILIZUMAB
     Indication: RHEUMATOID ARTHRITIS
     Dosage: 728 MG
     Route: 042
  24. LEFLUNOMIDE. [Suspect]
     Active Substance: LEFLUNOMIDE
  25. ORENCIA [Suspect]
     Active Substance: ABATACEPT
     Dosage: 125 MG, 1X/WEEK
     Route: 058
  26. DESOGESTREL/ETHINYL ESTRADIOL [Concomitant]
     Active Substance: DESOGESTREL\ETHINYL ESTRADIOL
  27. PREDNISONE. [Concomitant]
     Active Substance: PREDNISONE
  28. TYLENOL [Concomitant]
     Active Substance: ACETAMINOPHEN

REACTIONS (29)
  - Joint swelling [Not Recovered/Not Resolved]
  - Confusional state [Not Recovered/Not Resolved]
  - Dyspnoea [Not Recovered/Not Resolved]
  - Fatigue [Not Recovered/Not Resolved]
  - Ill-defined disorder [Not Recovered/Not Resolved]
  - Lower respiratory tract infection [Not Recovered/Not Resolved]
  - Peripheral swelling [Not Recovered/Not Resolved]
  - Weight increased [Not Recovered/Not Resolved]
  - Drug ineffective [Not Recovered/Not Resolved]
  - Pain [Not Recovered/Not Resolved]
  - Swelling [Not Recovered/Not Resolved]
  - Blister [Not Recovered/Not Resolved]
  - Folliculitis [Not Recovered/Not Resolved]
  - Hypersensitivity [Not Recovered/Not Resolved]
  - Impaired healing [Not Recovered/Not Resolved]
  - Nasopharyngitis [Not Recovered/Not Resolved]
  - Therapeutic product effect decreased [Not Recovered/Not Resolved]
  - Contraindicated product administered [Not Recovered/Not Resolved]
  - Muscle injury [Not Recovered/Not Resolved]
  - Sinusitis [Not Recovered/Not Resolved]
  - Sleep disorder due to general medical condition, insomnia type [Not Recovered/Not Resolved]
  - Arthralgia [Not Recovered/Not Resolved]
  - Pruritus [Not Recovered/Not Resolved]
  - Pyrexia [Not Recovered/Not Resolved]
  - Stomatitis [Not Recovered/Not Resolved]
  - Gastrointestinal disorder [Not Recovered/Not Resolved]
  - Rash [Not Recovered/Not Resolved]
  - Infection [Not Recovered/Not Resolved]
  - Irritable bowel syndrome [Not Recovered/Not Resolved]
